FAERS Safety Report 21927689 (Version 4)
Quarter: 2023Q4

REPORT INFORMATION
  Report Type: Spontaneous
  Country: US (occurrence: US)
  Receive Date: 20230130
  Receipt Date: 20231026
  Transmission Date: 20240109
  Serious: No
  Sender: FDA-Public Use
  Company Number: US-PFIZER INC-PV202300015890

PATIENT
  Age: 69 Year
  Sex: Female

DRUGS (1)
  1. EUCRISA [Suspect]
     Active Substance: CRISABOROLE
     Indication: Lichen planus
     Dosage: UNK UNK, 2X/DAY (100-G TUBE )
     Route: 061

REACTIONS (4)
  - Blood pressure abnormal [Unknown]
  - Memory impairment [Unknown]
  - Off label use [Unknown]
  - Drug effective for unapproved indication [Unknown]
